FAERS Safety Report 18419613 (Version 1)
Quarter: 2020Q4

REPORT INFORMATION
  Report Type: Spontaneous
  Country: US (occurrence: US)
  Receive Date: 20201023
  Receipt Date: 20201023
  Transmission Date: 20210114
  Serious: Yes (Hospitalization)
  Sender: FDA-Public Use
  Company Number: None

PATIENT
  Sex: Male

DRUGS (5)
  1. MYCOPHENOLATE [Suspect]
     Active Substance: MYCOPHENOLIC ACID
     Route: 048
     Dates: start: 20200924
  2. FLUCONAZOLE. [Concomitant]
     Active Substance: FLUCONAZOLE
     Dates: start: 20200623
  3. PREGABALIN. [Concomitant]
     Active Substance: PREGABALIN
     Dates: start: 20201002
  4. PREDNISONE. [Concomitant]
     Active Substance: PREDNISONE
     Dates: start: 20200625
  5. MAG-OX [Concomitant]
     Active Substance: MAGNESIUM OXIDE
     Dates: start: 20200727

REACTIONS (1)
  - Pyrexia [None]
